FAERS Safety Report 11179417 (Version 1)
Quarter: 2015Q2

REPORT INFORMATION
  Report Type: Spontaneous
  Country: BR (occurrence: BR)
  Receive Date: 20150611
  Receipt Date: 20150611
  Transmission Date: 20150821
  Serious: Yes (Hospitalization, Other)
  Sender: FDA-Public Use
  Company Number: PHHY2015BR068705

PATIENT
  Sex: Male

DRUGS (1)
  1. VOLTAREN [Suspect]
     Active Substance: DICLOFENAC SODIUM
     Indication: PRODUCT USED FOR UNKNOWN INDICATION
     Dosage: UNK
     Route: 030

REACTIONS (11)
  - Fall [Unknown]
  - Nerve injury [Unknown]
  - Emotional distress [Unknown]
  - Nerve degeneration [Unknown]
  - Pain [Unknown]
  - Peripheral nerve lesion [Unknown]
  - Paraesthesia [Unknown]
  - Paralysis [Unknown]
  - Feeling abnormal [Unknown]
  - Injection site oedema [Unknown]
  - Wrong technique in drug usage process [Unknown]
